FAERS Safety Report 4477879-0 (Version None)
Quarter: 2004Q4

REPORT INFORMATION
  Report Type: 
  Country: None (occurrence: None)
  Receive Date: 20041014
  Receipt Date: 20041004
  Transmission Date: 20050328
  Serious: Yes (Hospitalization)
  Sender: FDA-Public Use
  Company Number: 2004CG01975

PATIENT
  Age: 83 Year
  Sex: Male

DRUGS (4)
  1. MOPRAL [Suspect]
     Dosage: 20 MG DAILY; PO
     Route: 048
     Dates: end: 20040630
  2. LAMICTAL [Suspect]
     Indication: EPILEPSY
     Dosage: 125 MG DAILY; PO
     Route: 048
     Dates: start: 19990101, end: 20040512
  3. PREVISCAN [Suspect]
     Indication: ACUTE MYOCARDIAL INFARCTION
     Dosage: 10 MG DAILY; PO
     Route: 048
  4. DILTIAZEM HCL [Suspect]
     Indication: ESSENTIAL HYPERTENSION
     Dosage: 60 MG TID; PO
     Route: 048

REACTIONS (5)
  - DERMATITIS BULLOUS [None]
  - DISEASE RECURRENCE [None]
  - DRUG INEFFECTIVE [None]
  - FUNGAL INFECTION [None]
  - HERPES SIMPLEX [None]
